FAERS Safety Report 5250820-9 (Version None)
Quarter: 2007Q1

REPORT INFORMATION
  Report Type: 
  Country: None (occurrence: None)
  Receive Date: 20070228
  Receipt Date: 20060728
  Transmission Date: 20070707
  Serious: Yes (Life-Threatening)
  Sender: FDA-Public Use
  Company Number: US-GLAXOSMITHKLINE-A0611828A

PATIENT
  Age: 51 Year
  Sex: Male

DRUGS (1)
  1. LAMICTAL [Suspect]
     Indication: BIPOLAR DISORDER
     Dosage: 100MG PER DAY
     Route: 048
     Dates: end: 20060703

REACTIONS (4)
  - DYSPNOEA [None]
  - HAEMORRHAGE [None]
  - RASH [None]
  - STEVENS-JOHNSON SYNDROME [None]
